FAERS Safety Report 12805126 (Version 7)
Quarter: 2017Q1

REPORT INFORMATION
  Report Type: Report from Study
  Country: ES (occurrence: ES)
  Receive Date: 20161004
  Receipt Date: 20170315
  Transmission Date: 20170428
  Serious: Yes (Death, Hospitalization)
  Sender: FDA-Public Use
  Company Number: ES-ROCHE-1828804

PATIENT
  Age: 67 Year
  Sex: Female
  Weight: 82.4 kg

DRUGS (4)
  1. ATEZOLIZUMAB [Suspect]
     Active Substance: ATEZOLIZUMAB
     Indication: NON-SMALL CELL LUNG CANCER STAGE IV
     Dosage: DATE OF MOST RECENT DOSE PRIOR TO AE ONSET: 31/AUG/2016
     Route: 042
     Dates: start: 20160831
  2. PACLITAXEL. [Suspect]
     Active Substance: PACLITAXEL
     Indication: NON-SMALL CELL LUNG CANCER STAGE IV
     Dosage: DOSING 200 MG PER METER SQUARED. THE MOST RECENT DOSE PRIOR TO AE ONSET: 31/AUG/2016
     Route: 042
     Dates: start: 20160831
  3. CARBOPLATIN. [Suspect]
     Active Substance: CARBOPLATIN
     Indication: NON-SMALL CELL LUNG CANCER STAGE IV
     Dosage: DOSING = 6 MG/ML/MIN. THE MOST RECENT DOSE PRIOR TO AE ONSET WAS 613 MG ON 31/AUG/2016
     Route: 042
     Dates: start: 20160831
  4. PRIMPERAN [Concomitant]
     Active Substance: METOCLOPRAMIDE HYDROCHLORIDE
     Indication: NAUSEA
     Route: 065
     Dates: start: 20160905

REACTIONS (2)
  - Gastrointestinal toxicity [Fatal]
  - Neutropenia [Recovered/Resolved]

NARRATIVE: CASE EVENT DATE: 20160907
